FAERS Safety Report 4727484-3 (Version None)
Quarter: 2005Q3

REPORT INFORMATION
  Report Type: 
  Country: None (occurrence: None)
  Receive Date: 20050727
  Receipt Date: 20050727
  Transmission Date: 20060218
  Serious: No
  Sender: FDA-Public Use
  Company Number: None

PATIENT
  Age: 66 Year
  Sex: Female
  Weight: 88.905 kg

DRUGS (5)
  1. LOVASTATIN [Suspect]
     Indication: HYPERLIPIDAEMIA
     Dosage: 20 MG PO DAILY
     Route: 048
     Dates: start: 20050422
  2. LOVASTATIN [Suspect]
     Indication: HYPERLIPIDAEMIA
     Dosage: 20 MG PO DAILY
     Route: 048
     Dates: start: 20050705
  3. AVAPRO [Concomitant]
  4. METFORMIN [Concomitant]
  5. GLYBURIDE [Concomitant]

REACTIONS (1)
  - HYPERGLYCAEMIA [None]
